FAERS Safety Report 18710414 (Version 1)
Quarter: 2021Q1

REPORT INFORMATION
  Report Type: Spontaneous
  Country: US (occurrence: US)
  Receive Date: 20210107
  Receipt Date: 20210107
  Transmission Date: 20210419
  Serious: No
  Sender: FDA-Public Use
  Company Number: US-GLENMARK PHARMACEUTICALS-2020GMK045456

PATIENT

DRUGS (1)
  1. RANITIDINE HYDROCHLORIDE. [Suspect]
     Active Substance: RANITIDINE HYDROCHLORIDE
     Indication: ACIDOSIS
     Dosage: UNK
     Route: 065
     Dates: start: 201912

REACTIONS (3)
  - Abdominal pain upper [Unknown]
  - Recalled product administered [Unknown]
  - Adverse event [Unknown]
